FAERS Safety Report 11417435 (Version 4)
Quarter: 2015Q3

REPORT INFORMATION
  Report Type: Spontaneous
  Country: LT (occurrence: LT)
  Receive Date: 20150825
  Receipt Date: 20150929
  Transmission Date: 20151125
  Serious: Yes (Other)
  Sender: FDA-Public Use
  Company Number: LT-VIIV HEALTHCARE LIMITED-LT2015GSK109917

PATIENT
  Age: 48 Year
  Sex: Male

DRUGS (11)
  1. ZEFFIX [Suspect]
     Active Substance: LAMIVUDINE
     Indication: HEPATITIS B
     Dosage: 1 DF, QD
     Dates: start: 201409
  2. MICARDIS [Concomitant]
     Active Substance: TELMISARTAN
     Indication: BLOOD PRESSURE INCREASED
  3. CICLOSPORIN [Concomitant]
     Active Substance: CYCLOSPORINE
     Indication: RENAL FAILURE
  4. CYCLOSPORINE. [Concomitant]
     Active Substance: CYCLOSPORINE
     Indication: RENAL FAILURE
  5. ZEFFIX [Suspect]
     Active Substance: LAMIVUDINE
     Dosage: 0.5 DF, QD
  6. CELLCEPT [Concomitant]
     Active Substance: MYCOPHENOLATE MOFETIL\MYCOPHENOLATE MOFETIL HYDROCHLORIDE
     Indication: RENAL FAILURE
  7. TENAXUM [Concomitant]
     Active Substance: RILMENIDINE
     Indication: BLOOD PRESSURE INCREASED
  8. NEBILET [Concomitant]
     Active Substance: NEBIVOLOL
     Indication: BLOOD PRESSURE INCREASED
  9. CARDURA [Concomitant]
     Active Substance: DOXAZOSIN MESYLATE
     Indication: BLOOD PRESSURE INCREASED
  10. PREDNISOLONE. [Concomitant]
     Active Substance: PREDNISOLONE
     Indication: RENAL FAILURE
  11. PREDNISOLON [Concomitant]
     Active Substance: PREDNISOLONE
     Indication: RENAL FAILURE
     Dosage: 4 MG, QD

REACTIONS (3)
  - Transplant failure [Unknown]
  - Blood creatinine increased [Not Recovered/Not Resolved]
  - Treatment noncompliance [Unknown]
